FAERS Safety Report 23264477 (Version 1)
Quarter: 2023Q4

REPORT INFORMATION
  Report Type: Spontaneous
  Country: US (occurrence: US)
  Receive Date: 20231205
  Receipt Date: 20231205
  Transmission Date: 20240110
  Serious: Yes (Death, Other)
  Sender: FDA-Public Use
  Company Number: US-SANDOZ-SDZ2023US063264

PATIENT
  Age: 76 Year
  Sex: Male

DRUGS (1)
  1. HYCAMTIN [Suspect]
     Active Substance: TOPOTECAN HYDROCHLORIDE
     Indication: Lung neoplasm malignant
     Dosage: 4 MG, QD (FOR 5 DAYS OF EVERY 21DAY CYCLE)
     Route: 048
     Dates: start: 202307

REACTIONS (1)
  - Death [Fatal]

NARRATIVE: CASE EVENT DATE: 20230701
